FAERS Safety Report 8712036 (Version 2)
Quarter: 2012Q4

REPORT INFORMATION
  Report Type: Report from Study
  Country: US (occurrence: US)
  Receive Date: 20120807
  Receipt Date: 20120925
  Transmission Date: 20130627
  Serious: Yes (Other)
  Sender: FDA-Public Use
  Company Number: US-ABBOTT-12P-163-0962195-00

PATIENT
  Age: 36 None
  Sex: Female
  Weight: 70.82 kg

DRUGS (2)
  1. HUMIRA 40 MG/0.8 ML PEN [Suspect]
     Indication: CROHN^S DISEASE
  2. UNKNOWN PAIN MEDICATION [Concomitant]
     Indication: PRODUCT USED FOR UNKNOWN INDICATION

REACTIONS (7)
  - Gastrointestinal disorder [Recovering/Resolving]
  - Injection site pain [Unknown]
  - Injection site pain [Unknown]
  - Incorrect dose administered [Unknown]
  - Device malfunction [Unknown]
  - Malaise [Unknown]
  - Myalgia [Unknown]
